FAERS Safety Report 21086845 (Version 1)
Quarter: 2022Q3

REPORT INFORMATION
  Report Type: Spontaneous
  Country: US (occurrence: None)
  Receive Date: 20220715
  Receipt Date: 20220715
  Transmission Date: 20221027
  Serious: No
  Sender: FDA-Public Use
  Company Number: US-SUPERNUS Pharmaceuticals, Inc.-SUP202205-001464

PATIENT
  Age: 11 Year
  Sex: Male
  Weight: 31 kg

DRUGS (2)
  1. QELBREE [Suspect]
     Active Substance: VILOXAZINE HYDROCHLORIDE
     Indication: Attention deficit hyperactivity disorder
     Dates: end: 20220521
  2. Danazole XR [Concomitant]

REACTIONS (2)
  - Skin odour abnormal [Recovered/Resolved]
  - Headache [Unknown]
